FAERS Safety Report 13555128 (Version 2)
Quarter: 2017Q2

REPORT INFORMATION
  Report Type: Report from Study
  Country: JP (occurrence: JP)
  Receive Date: 20170517
  Receipt Date: 20170608
  Transmission Date: 20170830
  Serious: Yes (Disabling, Other)
  Sender: FDA-Public Use
  Company Number: JP-JNJFOC-20170513368

PATIENT
  Age: 77 Year
  Sex: Female
  Weight: 48.2 kg

DRUGS (14)
  1. XARELTO [Suspect]
     Active Substance: RIVAROXABAN
     Indication: CEREBROVASCULAR ACCIDENT PROPHYLAXIS
     Route: 048
     Dates: start: 20131026, end: 201702
  2. DONEPEZIL HYDROCHLORIDE. [Concomitant]
     Active Substance: DONEPEZIL HYDROCHLORIDE
     Route: 048
  3. DIART [Concomitant]
     Active Substance: AZOSEMIDE
     Route: 048
  4. LIVALO [Concomitant]
     Active Substance: PITAVASTATIN CALCIUM
     Route: 048
  5. XARELTO [Suspect]
     Active Substance: RIVAROXABAN
     Indication: THROMBOSIS PROPHYLAXIS
     Route: 048
     Dates: start: 201702, end: 20170318
  6. ATELEC [Concomitant]
     Active Substance: CILNIDIPINE
     Route: 048
     Dates: end: 20140807
  7. VERAPAMIL HCL [Concomitant]
     Active Substance: VERAPAMIL HYDROCHLORIDE
     Route: 048
  8. MAGMITT [Concomitant]
     Active Substance: MAGNESIUM OXIDE
     Indication: CONSTIPATION
     Route: 048
     Dates: start: 20140502
  9. YODEL [Concomitant]
     Active Substance: SENNA LEAF
     Indication: CONSTIPATION
     Route: 048
     Dates: start: 20140516
  10. LANIRAPID [Concomitant]
     Active Substance: METILDIGOXIN
     Route: 048
  11. ALDACTONE A [Concomitant]
     Active Substance: SPIRONOLACTONE
     Route: 048
  12. XARELTO [Suspect]
     Active Substance: RIVAROXABAN
     Indication: THROMBOSIS PROPHYLAXIS
     Route: 048
     Dates: start: 20131026, end: 201702
  13. XARELTO [Suspect]
     Active Substance: RIVAROXABAN
     Indication: CEREBROVASCULAR ACCIDENT PROPHYLAXIS
     Route: 048
     Dates: start: 201702, end: 20170318
  14. SEROQUEL [Concomitant]
     Active Substance: QUETIAPINE FUMARATE
     Route: 048
     Dates: end: 20151006

REACTIONS (6)
  - Subcutaneous haematoma [Recovering/Resolving]
  - Ecchymosis [Recovering/Resolving]
  - Blood creatinine increased [Not Recovered/Not Resolved]
  - Embolic stroke [Recovered/Resolved with Sequelae]
  - Chest wall haematoma [Recovering/Resolving]
  - Hepatic function abnormal [Recovering/Resolving]

NARRATIVE: CASE EVENT DATE: 20140627
